FAERS Safety Report 21863698 (Version 2)
Quarter: 2023Q1

REPORT INFORMATION
  Report Type: Other
  Country: US (occurrence: US)
  Receive Date: 20230116
  Receipt Date: 20230316
  Transmission Date: 20230417
  Serious: Yes (Hospitalization)
  Sender: FDA-Public Use
  Company Number: US-GBT-019341

PATIENT
  Age: 9 Year
  Sex: Female
  Weight: 28.123 kg

DRUGS (1)
  1. OXBRYTA [Suspect]
     Active Substance: VOXELOTOR
     Indication: Sickle cell disease
     Route: 048
     Dates: start: 202202

REACTIONS (12)
  - Hospitalisation [Unknown]
  - Swelling face [Unknown]
  - Rash [Unknown]
  - Therapy interrupted [Unknown]
  - Sickle cell anaemia with crisis [Unknown]
  - Hospitalisation [Unknown]
  - Product dosage form issue [Unknown]
  - Vomiting [Unknown]
  - Peripheral swelling [Not Recovered/Not Resolved]
  - Therapy interrupted [Unknown]
  - Oxygen therapy [Unknown]
  - Product dose omission issue [Unknown]

NARRATIVE: CASE EVENT DATE: 20220201
